FAERS Safety Report 10025824 (Version 1)
Quarter: 2014Q1

REPORT INFORMATION
  Report Type: Spontaneous
  Country: GB (occurrence: None)
  Receive Date: 20140314
  Receipt Date: 20140314
  Transmission Date: 20141002
  Serious: Yes (Life-Threatening, Other)
  Sender: FDA-Public Use
  Company Number: AUR-APL-2014-02609

PATIENT
  Age: 78 Year
  Sex: Male

DRUGS (10)
  1. LISINOPRIL [Suspect]
     Indication: HYPERTENSION
     Route: 048
     Dates: end: 201312
  2. ASPIRIN (ACETYLSALICYLIC ACID) [Concomitant]
  3. BISOPROLOL (BISOPROLOL) [Concomitant]
  4. DILTIAZEM (DILTIAZEM) [Concomitant]
  5. EZETIMIBE (EZETIMIBE) (TABLET) [Concomitant]
  6. FUROSEMIDE (FUROSEMIDE) [Concomitant]
  7. GEMFIBROZIL (FEMFIBROZIL) [Concomitant]
  8. GLICLAZIDE (GLICLAZIDE) [Concomitant]
  9. LORATADINE (LORATADINE) (LORATADINE) [Concomitant]
  10. METFORMIN (METFORMIN) [Concomitant]

REACTIONS (3)
  - Swollen tongue [None]
  - Speech disorder [None]
  - Dysphagia [None]
